FAERS Safety Report 15198179 (Version 2)
Quarter: 2018Q3

REPORT INFORMATION
  Report Type: Spontaneous
  Country: FR (occurrence: FR)
  Receive Date: 20180725
  Receipt Date: 20180830
  Transmission Date: 20181010
  Serious: Yes (Other)
  Sender: FDA-Public Use
  Company Number: PHHY2018FR051171

PATIENT
  Age: 51 Year
  Sex: Female
  Weight: 53 kg

DRUGS (2)
  1. COSENTYX [Suspect]
     Active Substance: SECUKINUMAB
     Dosage: 150 MG, QMO
     Route: 058
  2. COSENTYX [Suspect]
     Active Substance: SECUKINUMAB
     Indication: ANKYLOSING SPONDYLITIS
     Dosage: 150 MG, QW
     Route: 058
     Dates: start: 201803

REACTIONS (6)
  - Psychological trauma [Unknown]
  - Blister [Unknown]
  - Herpes zoster [Not Recovered/Not Resolved]
  - Headache [Unknown]
  - Burning sensation [Unknown]
  - Body temperature increased [Unknown]

NARRATIVE: CASE EVENT DATE: 20180715
